FAERS Safety Report 11184552 (Version 1)
Quarter: 2015Q2

REPORT INFORMATION
  Report Type: Spontaneous
  Country: DE (occurrence: DE)
  Receive Date: 20150612
  Receipt Date: 20150612
  Transmission Date: 20150821
  Serious: Yes (Other)
  Sender: FDA-Public Use
  Company Number: DE-WATSON-2015-11323

PATIENT
  Age: 1 Day
  Sex: Female
  Weight: 2.3 kg

DRUGS (3)
  1. LEVETIRACETAM (UNKNOWN) [Suspect]
     Active Substance: LEVETIRACETAM
     Indication: EPILEPSY
     Dosage: 500 MG, BID
     Route: 064
     Dates: start: 20140520, end: 20150205
  2. FOLSAEURE [Concomitant]
     Active Substance: FOLIC ACID
     Indication: PROPHYLAXIS OF NEURAL TUBE DEFECT
     Dosage: UNK
     Route: 064
  3. TOPIRAMATE (UNKNOWN) [Suspect]
     Active Substance: TOPIRAMATE
     Indication: EPILEPSY
     Dosage: 100 MG, BID
     Route: 064
     Dates: start: 20140520, end: 20150205

REACTIONS (3)
  - Small for dates baby [Unknown]
  - Foetal exposure during pregnancy [Unknown]
  - Respiratory disorder neonatal [Recovered/Resolved]

NARRATIVE: CASE EVENT DATE: 20150205
